FAERS Safety Report 10503701 (Version 3)
Quarter: 2015Q1

REPORT INFORMATION
  Report Type: Report from Study
  Country: DE (occurrence: DE)
  Receive Date: 20141008
  Receipt Date: 20150130
  Transmission Date: 20150720
  Serious: No
  Sender: FDA-Public Use
  Company Number: PHHY2014DE130528

PATIENT
  Sex: Male

DRUGS (10)
  1. AMN107 [Suspect]
     Active Substance: NILOTINIB
     Dosage: 400 MG, PER DAY
     Route: 048
     Dates: start: 20140912
  2. VESIKUR [Concomitant]
     Active Substance: SOLIFENACIN SUCCINATE
     Indication: PRODUCT USED FOR UNKNOWN INDICATION
     Dates: start: 2011, end: 20130430
  3. BISOPROLOL [Concomitant]
     Active Substance: BISOPROLOL
     Indication: PRODUCT USED FOR UNKNOWN INDICATION
     Dosage: 2.5 MG, UNK
     Dates: start: 2011
  4. AMN107 [Suspect]
     Active Substance: NILOTINIB
     Dosage: 600 MG, PER DAY
     Route: 048
     Dates: start: 20130920
  5. AMN107 [Suspect]
     Active Substance: NILOTINIB
     Dosage: 600 MG, PER DAY
     Route: 048
     Dates: start: 20130409
  6. AMN107 [Suspect]
     Active Substance: NILOTINIB
     Dosage: 600 MG, PER DAY
     Route: 048
     Dates: start: 20130503
  7. AMN107 [Suspect]
     Active Substance: NILOTINIB
     Dosage: 600 MG, PER DAY
     Route: 048
     Dates: start: 20130726
  8. AMN107 [Suspect]
     Active Substance: NILOTINIB
     Dosage: 400 MG, PER DAY
     Route: 048
     Dates: start: 20140110
  9. AMN107 [Suspect]
     Active Substance: NILOTINIB
     Dosage: 400 MG, PER DAY
     Route: 048
     Dates: start: 20140404
  10. AMN107 [Suspect]
     Active Substance: NILOTINIB
     Indication: CHRONIC MYELOID LEUKAEMIA
     Dosage: 600 MG, PER DAY
     Route: 048
     Dates: start: 20130308

REACTIONS (3)
  - Hypertension [Not Recovered/Not Resolved]
  - Erectile dysfunction [Recovered/Resolved]
  - Magnesium deficiency [Not Recovered/Not Resolved]

NARRATIVE: CASE EVENT DATE: 20140912
